FAERS Safety Report 10588809 (Version 2)
Quarter: 2014Q4

REPORT INFORMATION
  Report Type: Report from Study
  Country: PL (occurrence: PL)
  Receive Date: 20141117
  Receipt Date: 20141117
  Transmission Date: 20150529
  Serious: Yes (Death, Hospitalization)
  Sender: FDA-Public Use
  Company Number: PL-BAYER-2014-158668

PATIENT
  Age: 49 Year
  Sex: Male
  Weight: 60 kg

DRUGS (5)
  1. CIPROFLOXACIN. [Suspect]
     Active Substance: CIPROFLOXACIN
     Indication: BRONCHIECTASIS
     Dosage: 32.5 MG, BID
     Route: 055
     Dates: start: 20140919, end: 20141015
  2. THEOPHYLLINE [Concomitant]
     Active Substance: THEOPHYLLINE ANHYDROUS
     Indication: CHRONIC OBSTRUCTIVE PULMONARY DISEASE
     Dosage: DAILY DOSE 600 MG
     Route: 048
     Dates: start: 20140712
  3. FORMOTEROL [Concomitant]
     Active Substance: FORMOTEROL
     Indication: CHRONIC OBSTRUCTIVE PULMONARY DISEASE
     Dosage: DAILY DOSE 24 MG
     Route: 055
     Dates: start: 20140430
  4. ATROVENT [Concomitant]
     Active Substance: IPRATROPIUM BROMIDE
     Indication: CHRONIC OBSTRUCTIVE PULMONARY DISEASE
     Dosage: DAILY DOSE 120 ?G
     Route: 055
     Dates: start: 20140430
  5. VENTOLAIR [Concomitant]
     Active Substance: BECLOMETHASONE DIPROPIONATE
     Indication: CHRONIC OBSTRUCTIVE PULMONARY DISEASE
     Dosage: 100 ?G, PRN
     Route: 055
     Dates: start: 20140430

REACTIONS (2)
  - Atrial flutter [Not Recovered/Not Resolved]
  - Congestive cardiomyopathy [Fatal]

NARRATIVE: CASE EVENT DATE: 20141022
